FAERS Safety Report 14872009 (Version 2)
Quarter: 2018Q2

REPORT INFORMATION
  Report Type: Spontaneous
  Country: US (occurrence: US)
  Receive Date: 20180509
  Receipt Date: 20180515
  Transmission Date: 20180711
  Serious: Yes (Hospitalization)
  Sender: FDA-Public Use
  Company Number: US-MITSUBISHI TANABE PHARMA CORPORATION-MPE2018-0009823

PATIENT
  Age: 73 Year
  Sex: Male

DRUGS (6)
  1. OMEPRAZOLE. [Concomitant]
     Active Substance: OMEPRAZOLE
     Route: 065
  2. CLARITIN [Concomitant]
     Active Substance: LORATADINE
     Route: 065
  3. ATROPINE. [Concomitant]
     Active Substance: ATROPINE
     Route: 048
  4. RADICAVA [Suspect]
     Active Substance: EDARAVONE
     Indication: AMYOTROPHIC LATERAL SCLEROSIS
     Route: 042
     Dates: start: 20180207, end: 20180406
  5. RILUZOLE. [Concomitant]
     Active Substance: RILUZOLE
     Route: 065
  6. PROCARDIA [Concomitant]
     Active Substance: NIFEDIPINE
     Route: 065

REACTIONS (1)
  - Rash [Recovered/Resolved]

NARRATIVE: CASE EVENT DATE: 20180415
